FAERS Safety Report 4307618-5 (Version None)
Quarter: 2004Q1

REPORT INFORMATION
  Report Type: 
  Country: None (occurrence: None)
  Receive Date: 20040226
  Receipt Date: 20040216
  Transmission Date: 20041129
  Serious: Yes (Other)
  Sender: FDA-Public Use
  Company Number: 2004010384

PATIENT
  Sex: Male

DRUGS (3)
  1. NEURONTIN [Suspect]
     Indication: EPILEPSY
     Dosage: 1600 OR 1800 (DAILY)
  2. CLONAZEPAM [Concomitant]
  3. LEVOMEPROMAZINE (LEVOMEPROMAZINE) [Concomitant]

REACTIONS (1)
  - AGGRESSION [None]
